FAERS Safety Report 4791456-3 (Version None)
Quarter: 2005Q4

REPORT INFORMATION
  Report Type: 
  Country: None (occurrence: None)
  Receive Date: 20051007
  Receipt Date: 20050929
  Transmission Date: 20060501
  Serious: Yes (Other)
  Sender: FDA-Public Use
  Company Number: US-MERCK-0510USA00701

PATIENT
  Age: 51 Year
  Sex: Male
  Weight: 91 kg

DRUGS (6)
  1. VIOXX [Suspect]
     Indication: ARTHRITIS
     Route: 048
     Dates: start: 20020101
  2. VIOXX [Suspect]
     Route: 048
     Dates: start: 20020101
  3. [THERAPY UNSPECIFIED] [Concomitant]
     Route: 065
  4. DARVOCET-N 100 [Concomitant]
     Route: 065
  5. NEXIUM [Concomitant]
     Route: 065
  6. ALTACE [Concomitant]
     Route: 065

REACTIONS (2)
  - MYOCARDIAL INFARCTION [None]
  - OVERDOSE [None]
